FAERS Safety Report 26203023 (Version 1)
Quarter: 2025Q4

REPORT INFORMATION
  Report Type: Spontaneous
  Country: EU (occurrence: EU)
  Receive Date: 20251226
  Receipt Date: 20251226
  Transmission Date: 20260118
  Serious: Yes (Hospitalization)
  Sender: AUROBINDO
  Company Number: EU-SANDOZ-SDZ2025DE055927

PATIENT
  Sex: Female

DRUGS (3)
  1. IBUPROFEN [Suspect]
     Active Substance: IBUPROFEN
     Indication: Product used for unknown indication
     Dosage: 600 MILLIGRAM
     Route: 065
     Dates: start: 20130701, end: 20221206
  2. ETORICOXIB [Suspect]
     Active Substance: ETORICOXIB
     Indication: Axial spondyloarthritis
     Dosage: 90 MILLIGRAM (90 MG 1 DAY PER WEEK)
     Route: 065
  3. COSENTYX [Suspect]
     Active Substance: SECUKINUMAB
     Indication: Axial spondyloarthritis
     Dosage: 150 MILLIGRAM(EVERY 4 WEEKS)
     Route: 065

REACTIONS (1)
  - Mammoplasty [Recovering/Resolving]

NARRATIVE: CASE EVENT DATE: 20250212
